FAERS Safety Report 4686878-5 (Version None)
Quarter: 2005Q2

REPORT INFORMATION
  Report Type: 
  Country: None (occurrence: None)
  Receive Date: 20050608
  Receipt Date: 20050526
  Transmission Date: 20051028
  Serious: Yes (Hospitalization)
  Sender: FDA-Public Use
  Company Number: 2005080688

PATIENT
  Age: 78 Year
  Sex: Male

DRUGS (9)
  1. RIFABUTIN (RIFABUTIN) [Suspect]
     Indication: ILL-DEFINED DISORDER
  2. CLARITHROMYCIN [Suspect]
     Indication: ILL-DEFINED DISORDER
  3. EBUTOL (ETHAMBUTOL) [Suspect]
     Indication: ILL-DEFINED DISORDER
  4. LECTISOL (DAPSONE) [Suspect]
     Indication: ILL-DEFINED DISORDER
  5. ABELCET [Suspect]
     Indication: ILL-DEFINED DISORDER
     Dates: start: 20030422, end: 20030427
  6. ITRACONAZOLE [Suspect]
     Indication: ILL-DEFINED DISORDER
     Dates: start: 20030428, end: 20030526
  7. VIREAD [Concomitant]
  8. EPIVIR [Concomitant]
  9. VIRACEPT [Concomitant]

REACTIONS (6)
  - ANAEMIA [None]
  - BRONCHOPULMONARY ASPERGILLOSIS [None]
  - DYSGEUSIA [None]
  - PLATELET COUNT DECREASED [None]
  - RENAL IMPAIRMENT [None]
  - WHITE BLOOD CELL COUNT DECREASED [None]
